FAERS Safety Report 6393051-1 (Version None)
Quarter: 2009Q4

REPORT INFORMATION
  Report Type: 
  Country: None (occurrence: None)
  Receive Date: 20091008
  Receipt Date: 20070607
  Transmission Date: 20100525
  Serious: Yes (Hospitalization)
  Sender: FDA-Public Use
  Company Number: US-ASTRAZENECA-2006UW26712

PATIENT
  Age: 54 Year
  Sex: Female
  Weight: 73 kg

DRUGS (10)
  1. SEROQUEL [Suspect]
     Indication: DEPRESSION
     Route: 048
     Dates: start: 20030101
  2. SEROQUEL [Suspect]
     Indication: ANXIETY
     Route: 048
     Dates: start: 20030101
  3. SEROQUEL [Suspect]
     Dosage: 25MG-300MG
     Route: 048
     Dates: start: 20030723
  4. SEROQUEL [Suspect]
     Dosage: 25MG-300MG
     Route: 048
     Dates: start: 20030723
  5. TRAZODONE [Concomitant]
     Dosage: 30MG-50MG
     Dates: start: 20030702
  6. REMERON [Concomitant]
     Dates: start: 20031008
  7. ATENOLOL [Concomitant]
     Indication: BLOOD PRESSURE
     Route: 048
     Dates: start: 20030702
  8. HYDROCHLOROTHIAZIDE [Concomitant]
     Indication: BLOOD PRESSURE
     Route: 048
     Dates: start: 20030702
  9. LIPITOR [Concomitant]
     Indication: BLOOD CHOLESTEROL
     Dates: start: 20031017
  10. BUPROPION HCL [Concomitant]
     Indication: DEPRESSION
     Dates: start: 20030821

REACTIONS (7)
  - ACCIDENT [None]
  - BIPOLAR DISORDER [None]
  - BLOOD CHOLESTEROL INCREASED [None]
  - DIABETES MELLITUS [None]
  - HYPERLIPIDAEMIA [None]
  - MIXED HYPERLIPIDAEMIA [None]
  - SCHIZOPHRENIA [None]
